FAERS Safety Report 4878255-9 (Version None)
Quarter: 2006Q1

REPORT INFORMATION
  Report Type: 
  Country: None (occurrence: None)
  Receive Date: 20060111
  Receipt Date: 20050127
  Transmission Date: 20060701
  Serious: Yes (Disabling)
  Sender: FDA-Public Use
  Company Number: US-MERCK-0501USA04325

PATIENT
  Age: 57 Year
  Sex: Male
  Weight: 114 kg

DRUGS (1)
  1. VIOXX [Suspect]
     Indication: SPINAL OSTEOARTHRITIS
     Route: 048
     Dates: start: 20000814, end: 20040928

REACTIONS (3)
  - ARTERIAL DISORDER [None]
  - ATRIAL FLUTTER [None]
  - CORONARY ARTERY OCCLUSION [None]
